FAERS Safety Report 15280338 (Version 1)
Quarter: 2018Q3

REPORT INFORMATION
  Report Type: Spontaneous
  Country: US (occurrence: US)
  Receive Date: 20180730
  Receipt Date: 20180730
  Transmission Date: 20181010
  Serious: Yes (Other)
  Sender: FDA-Public Use
  Company Number: None

PATIENT
  Age: 8 Year
  Sex: Female
  Weight: 24.75 kg

DRUGS (1)
  1. AFTER BITE THE ITCH ERASER KIDS (AMMONIA) [Suspect]
     Active Substance: AMMONIA
     Indication: ARTHROPOD BITE
     Route: 061
     Dates: start: 20180728, end: 20180728

REACTIONS (5)
  - Application site erythema [None]
  - Drug dispensing error [None]
  - Application site burn [None]
  - Crying [None]
  - Screaming [None]

NARRATIVE: CASE EVENT DATE: 20180728
